FAERS Safety Report 7307649-7 (Version None)
Quarter: 2011Q1

REPORT INFORMATION
  Report Type: 
  Country: None (occurrence: None)
  Receive Date: 20110223
  Receipt Date: 20110214
  Transmission Date: 20110831
  Serious: Yes (Hospitalization)
  Sender: FDA-Public Use
  Company Number: JP-PFIZER INC-2011032703

PATIENT
  Age: 38 Year
  Sex: Male

DRUGS (5)
  1. PHENYTOIN [Concomitant]
     Indication: CONVULSION
     Dosage: UNK
     Dates: start: 20000101
  2. CARBAMAZEPINE [Suspect]
     Indication: CONVULSION
     Dosage: UNK
     Dates: start: 20040301, end: 20040611
  3. LOXONIN [Concomitant]
     Dosage: UNK
     Route: 042
     Dates: start: 20040526, end: 20040611
  4. MINOMYCIN [Suspect]
     Indication: LYMPHADENOPATHY
     Dosage: UNK
     Route: 042
     Dates: start: 20040526, end: 20040602
  5. DALACIN [Suspect]
     Indication: LYMPHADENOPATHY
     Dosage: UNK
     Route: 042
     Dates: start: 20040526

REACTIONS (1)
  - DRUG RASH WITH EOSINOPHILIA AND SYSTEMIC SYMPTOMS [None]
